FAERS Safety Report 5928021-8 (Version None)
Quarter: 2008Q4

REPORT INFORMATION
  Report Type: 
  Country: None (occurrence: None)
  Receive Date: 20081023
  Receipt Date: 20081014
  Transmission Date: 20090506
  Serious: Yes (Other)
  Sender: FDA-Public Use
  Company Number: US-AVENTIS-200718398US

PATIENT
  Sex: Male

DRUGS (13)
  1. KETEK [Suspect]
     Indication: SINUSITIS
     Dates: start: 20060608
  2. KETEK [Suspect]
     Indication: UPPER RESPIRATORY TRACT INFECTION
     Dates: start: 20060608
  3. DEPAKOTE [Suspect]
     Dosage: DOSE: UNK
     Dates: start: 20020603
  4. DEPAKOTE [Suspect]
     Dosage: DOSE: TWO TABS 250 MG AM +3 TABS HS AM +
     Dates: start: 20060825
  5. DEPAKOTE [Suspect]
     Dosage: DOSE: TWO , 250 MG TABS AM +, TWO 250 MG HS
     Dates: end: 20070924
  6. LEXAPRO [Concomitant]
     Indication: DEPRESSION
  7. ERYTHROMYCIN GEL [Concomitant]
     Indication: ACNE
     Dosage: DOSE: UNK
  8. FLONASE [Concomitant]
     Dosage: DOSE: UNK
  9. ZYPREXA [Concomitant]
     Indication: DEPRESSION
  10. ALPRAZOLAM [Concomitant]
  11. ALPRAZOLAM [Concomitant]
     Dosage: DOSE: O.5 AM + 1.5 PM
     Dates: start: 20080314
  12. ZYRTEC [Concomitant]
  13. HYOSCYAMINE [Concomitant]
     Dosage: DOSE: UNK

REACTIONS (3)
  - DIARRHOEA [None]
  - HEPATIC ENZYME INCREASED [None]
  - HEPATIC STEATOSIS [None]
